FAERS Safety Report 12427725 (Version 1)
Quarter: 2016Q2

REPORT INFORMATION
  Report Type: Spontaneous
  Country: DK (occurrence: DK)
  Receive Date: 20160602
  Receipt Date: 20160602
  Transmission Date: 20160815
  Serious: Yes (Other)
  Sender: FDA-Public Use
  Company Number: DK-SUN PHARMACEUTICAL INDUSTRIES LTD-2016R1-117367

PATIENT
  Age: 21 Year
  Sex: Female

DRUGS (5)
  1. SILVER SULFADIAZINE. [Concomitant]
     Active Substance: SILVER SULFADIAZINE
     Indication: DERMATOPHYTOSIS
     Route: 061
  2. METRONIDAZOLE. [Concomitant]
     Active Substance: METRONIDAZOLE
     Indication: DERMATOPHYTOSIS
     Dosage: UNK
     Route: 065
  3. ISOTRETINOIN [Suspect]
     Active Substance: ISOTRETINOIN
     Indication: HYPERKERATOSIS
     Dosage: 40 MG, DAILY
     Route: 065
  4. TERBINAFINE. [Concomitant]
     Active Substance: TERBINAFINE
     Indication: DERMATOPHYTOSIS
     Dosage: UNK
     Route: 065
  5. DICLOXACILLIN [Concomitant]
     Active Substance: DICLOXACILLIN
     Indication: DERMATOPHYTOSIS
     Dosage: UNK
     Route: 065

REACTIONS (3)
  - Mucous membrane disorder [Unknown]
  - Skin disorder [Unknown]
  - Exposure during pregnancy [Unknown]
